FAERS Safety Report 23181357 (Version 1)
Quarter: 2023Q4

REPORT INFORMATION
  Report Type: Spontaneous
  Country: US (occurrence: US)
  Receive Date: 20231114
  Receipt Date: 20231114
  Transmission Date: 20240109
  Serious: Yes (Other)
  Sender: FDA-Public Use
  Company Number: US-FreseniusKabi-FK202318049

PATIENT
  Age: 49 Year
  Sex: Female

DRUGS (5)
  1. LETROZOLE [Suspect]
     Active Substance: LETROZOLE
     Indication: Invasive ductal breast carcinoma
  2. ZOLEDRONIC ACID [Suspect]
     Active Substance: ZOLEDRONIC ACID
     Indication: Invasive ductal breast carcinoma
  3. PALBOCICLIB [Suspect]
     Active Substance: PALBOCICLIB
     Indication: Invasive ductal breast carcinoma
  4. GOSERELIN [Suspect]
     Active Substance: GOSERELIN
     Indication: Invasive ductal breast carcinoma
  5. TOREMIFENE [Concomitant]
     Active Substance: TOREMIFENE
     Indication: Invasive ductal breast carcinoma

REACTIONS (5)
  - Neuropathy peripheral [Unknown]
  - Anxiety [Recovering/Resolving]
  - Constipation [Unknown]
  - Fatigue [Unknown]
  - Nausea [Unknown]
